FAERS Safety Report 23532894 (Version 2)
Quarter: 2024Q3

REPORT INFORMATION
  Report Type: Spontaneous
  Country: FR (occurrence: FR)
  Receive Date: 20240216
  Receipt Date: 20240820
  Transmission Date: 20241017
  Serious: Yes (Other)
  Sender: PFIZER
  Company Number: None

PATIENT
  Age: 36 Year
  Sex: Female
  Weight: 105 kg

DRUGS (3)
  1. CARBOPLATIN [Suspect]
     Active Substance: CARBOPLATIN
     Indication: Triple negative breast cancer
     Dosage: 1 DF, CYCLIC (1 DF EVERY 7 DAYS)
     Route: 042
     Dates: start: 20230908, end: 20231124
  2. PACLITAXEL [Suspect]
     Active Substance: PACLITAXEL
     Indication: Triple negative breast cancer
     Dosage: 1 DF, CYCLIC (1 DF EVERY 7 DAYS)
     Route: 042
     Dates: start: 20230908, end: 20231124
  3. KEYTRUDA [Suspect]
     Active Substance: PEMBROLIZUMAB
     Indication: Triple negative breast cancer
     Dosage: 200 MG, CYCLIC (200 MG EVERY 21 DAYS)
     Route: 042
     Dates: start: 20230908, end: 20231124

REACTIONS (2)
  - Autoimmune haemolytic anaemia [Recovering/Resolving]
  - Off label use [Unknown]

NARRATIVE: CASE EVENT DATE: 20230908
